FAERS Safety Report 9728049 (Version 1)
Quarter: 2013Q4

REPORT INFORMATION
  Report Type: Spontaneous
  Country: DE (occurrence: None)
  Receive Date: 20131127
  Receipt Date: 20131127
  Transmission Date: 20140711
  Serious: Yes (Other)
  Sender: FDA-Public Use
  Company Number: 2013EU009111

PATIENT
  Sex: Male

DRUGS (1)
  1. XTANDI (ENZALUTAMIDE) FORMULATION UNKNOWN [Suspect]
     Dates: start: 20130911

REACTIONS (2)
  - Infection [None]
  - White blood cell count increased [None]
